FAERS Safety Report 20483303 (Version 1)
Quarter: 2022Q1

REPORT INFORMATION
  Report Type: Spontaneous
  Country: US (occurrence: None)
  Receive Date: 20220217
  Receipt Date: 20220217
  Transmission Date: 20220424
  Serious: Yes (Other)
  Sender: FDA-Public Use
  Company Number: 2022A069056

PATIENT
  Age: 66 Year
  Sex: Female
  Weight: 39 kg

DRUGS (2)
  1. TAGRISSO [Suspect]
     Active Substance: OSIMERTINIB
     Indication: Non-small cell lung cancer metastatic
     Route: 048
     Dates: start: 201907
  2. TAGRISSO [Suspect]
     Active Substance: OSIMERTINIB
     Indication: Non-small cell lung cancer metastatic
     Route: 048
     Dates: start: 2021

REACTIONS (7)
  - Malignant neoplasm progression [Unknown]
  - Muscle atrophy [Unknown]
  - Mastication disorder [Unknown]
  - Weight decreased [Unknown]
  - Gait disturbance [Unknown]
  - Balance disorder [Unknown]
  - Off label use [Unknown]

NARRATIVE: CASE EVENT DATE: 20190101
